FAERS Safety Report 7343375-6 (Version None)
Quarter: 2011Q1

REPORT INFORMATION
  Report Type: 
  Country: None (occurrence: None)
  Receive Date: 20110310
  Receipt Date: 20110218
  Transmission Date: 20110831
  Serious: Yes (Other)
  Sender: FDA-Public Use
  Company Number: PHHY2011HR13652

PATIENT
  Age: 77 Year
  Sex: Female

DRUGS (3)
  1. VALSACOR [Interacting]
     Indication: HYPERTENSION
     Dosage: 160 MG, QD
     Route: 048
     Dates: start: 20101105, end: 20110118
  2. WARFARIN SODIUM [Concomitant]
     Dosage: UNK
     Dates: start: 20101105, end: 20110118
  3. LESCOL [Suspect]
     Dosage: 40 MG, QD

REACTIONS (3)
  - DRUG INEFFECTIVE [None]
  - HYPERTENSION [None]
  - DRUG INTERACTION [None]
